FAERS Safety Report 4707255-4 (Version None)
Quarter: 2005Q3

REPORT INFORMATION
  Report Type: 
  Country: None (occurrence: None)
  Receive Date: 20050701
  Receipt Date: 20050617
  Transmission Date: 20060218
  Serious: No
  Sender: FDA-Public Use
  Company Number: 11668

PATIENT
  Age: 10 Year
  Sex: Male

DRUGS (4)
  1. METHOTREXATE [Suspect]
     Dosage: 12 G/M2 FREQ
     Dates: start: 20021103
  2. CISPLATIN [Concomitant]
  3. ADRIAMYCIN PFS [Concomitant]
  4. LEUCOVORIN CALCIUM [Concomitant]

REACTIONS (5)
  - CONVULSION [None]
  - DEPRESSED LEVEL OF CONSCIOUSNESS [None]
  - DIPLOPIA [None]
  - DISORIENTATION [None]
  - EYE MOVEMENT DISORDER [None]
